FAERS Safety Report 19566527 (Version 1)
Quarter: 2021Q3

REPORT INFORMATION
  Report Type: Spontaneous
  Country: US (occurrence: US)
  Receive Date: 20210715
  Receipt Date: 20210715
  Transmission Date: 20211014
  Serious: Yes (Death)
  Sender: FDA-Public Use
  Company Number: US-ADAMAS PHARMA, LLC-2021ADA01581

PATIENT
  Sex: Female

DRUGS (20)
  1. PRIMIDONE. [Concomitant]
     Active Substance: PRIMIDONE
  2. GOCOVRI [Suspect]
     Active Substance: AMANTADINE
     Dosage: 274 MG, 1X/DAY AT BEDTIME
     Route: 048
     Dates: start: 20210412, end: 2021
  3. SINEMET [Concomitant]
     Active Substance: CARBIDOPA\LEVODOPA
  4. SYMBICORT [Concomitant]
     Active Substance: BUDESONIDE\FORMOTEROL FUMARATE DIHYDRATE
  5. VITAMIN D [Concomitant]
     Active Substance: VITAMIN D NOS
  6. APOKYN [Concomitant]
     Active Substance: APOMORPHINE HYDROCHLORIDE
  7. COLACE [Concomitant]
     Active Substance: DOCUSATE SODIUM
  8. ELIQUIS [Concomitant]
     Active Substance: APIXABAN
  9. FOLIC ACID. [Concomitant]
     Active Substance: FOLIC ACID
  10. FOLIC ACID. [Concomitant]
     Active Substance: FOLIC ACID
  11. TRAZODONE [Concomitant]
     Active Substance: TRAZODONE HYDROCHLORIDE
  12. GOCOVRI [Suspect]
     Active Substance: AMANTADINE
     Indication: DYSKINESIA
     Dosage: 137 MG, 1X/DAY AT BEDTIME
     Route: 048
     Dates: start: 20180221, end: 20180227
  13. GOCOVRI [Suspect]
     Active Substance: AMANTADINE
     Dosage: 137 MG, 1X/DAY AT BEDTIME
     Route: 048
     Dates: start: 20210405, end: 20210411
  14. CALCIUM [Concomitant]
     Active Substance: CALCIUM
  15. MAGNESIUM [Concomitant]
     Active Substance: MAGNESIUM
  16. PRAMIPEXOLE ER [Concomitant]
     Active Substance: PRAMIPEXOLE DIHYDROCHLORIDE
  17. BENZONATATE. [Concomitant]
     Active Substance: BENZONATATE
  18. GOCOVRI [Suspect]
     Active Substance: AMANTADINE
     Dosage: 274 MG, 1X/DAY AT BEDTIME
     Route: 048
     Dates: start: 20180228, end: 201803
  19. METOPROLOL. [Concomitant]
     Active Substance: METOPROLOL
  20. RYTARY [Concomitant]
     Active Substance: CARBIDOPA\LEVODOPA

REACTIONS (1)
  - Death [Fatal]

NARRATIVE: CASE EVENT DATE: 2021
